FAERS Safety Report 7389260-5 (Version None)
Quarter: 2011Q2

REPORT INFORMATION
  Report Type: 
  Country: None (occurrence: None)
  Receive Date: 20110401
  Receipt Date: 20110104
  Transmission Date: 20111010
  Serious: No
  Sender: FDA-Public Use
  Company Number: US-BAYER-2011-027924

PATIENT
  Sex: Female
  Weight: 88 kg

DRUGS (2)
  1. FLINTSTONES COMPLETE [Suspect]
     Dosage: UNK UNK, QD
     Route: 048
  2. ALEVE (CAPLET) [Suspect]
     Indication: HEADACHE
     Dosage: 440 MG, ONCE, BOTTLE COUNT 200S
     Route: 048
     Dates: start: 20110104

REACTIONS (1)
  - NO ADVERSE EVENT [None]
